FAERS Safety Report 9949447 (Version 3)
Quarter: 2014Q1

REPORT INFORMATION
  Report Type: Spontaneous
  Country: US (occurrence: US)
  Receive Date: 20140304
  Receipt Date: 20140331
  Transmission Date: 20141002
  Serious: Yes (Death)
  Sender: FDA-Public Use
  Company Number: US-ASTELLAS-2014US000008

PATIENT
  Age: 94 Year
  Sex: Male

DRUGS (2)
  1. XTANDI [Suspect]
     Indication: PROSTATE CANCER
     Dosage: 160 MG, UID/QD
     Route: 048
     Dates: start: 20121001, end: 20140219
  2. XTANDI [Suspect]
     Dosage: 160 MG, UID/QD
     Route: 048

REACTIONS (3)
  - Death [Fatal]
  - Fatigue [Unknown]
  - Prostatic specific antigen increased [Unknown]
